FAERS Safety Report 16025685 (Version 2)
Quarter: 2019Q1

REPORT INFORMATION
  Report Type: Spontaneous
  Country: TR (occurrence: TR)
  Receive Date: 20190302
  Receipt Date: 20190320
  Transmission Date: 20190418
  Serious: Yes (Other)
  Sender: FDA-Public Use
  Company Number: TR-009507513-1902TUR010554

PATIENT
  Age: 82 Year
  Sex: Female
  Weight: 70 kg

DRUGS (6)
  1. CORTAIR [Concomitant]
     Dosage: UNK, BID
  2. ENOX (ENOXAPARIN SODIUM) [Concomitant]
     Dosage: 0.4 CC, 1X1
     Route: 058
  3. VASTAREL [Concomitant]
     Active Substance: TRIMETAZIDINE DIHYDROCHLORIDE
     Dosage: 35 MILLIGRAM, BID
     Route: 048
  4. INVANZ [Suspect]
     Active Substance: ERTAPENEM SODIUM
     Indication: CULTURE TISSUE SPECIMEN POSITIVE
     Dosage: 1 GRAM, QD
     Route: 042
     Dates: start: 20180927, end: 20180928
  5. PULCET [Concomitant]
     Active Substance: PANTOPRAZOLE SODIUM
     Dosage: 40 MILLIGRAM, QD
     Route: 048
  6. MENEKLIN [Concomitant]
     Dosage: 600 MILLIGRAM, TID
     Route: 042

REACTIONS (4)
  - Somnolence [Recovered/Resolved]
  - Loss of consciousness [Recovered/Resolved]
  - Sleep disorder [Recovered/Resolved]
  - Presyncope [Recovered/Resolved]

NARRATIVE: CASE EVENT DATE: 201809
